FAERS Safety Report 7740173-6 (Version None)
Quarter: 2011Q3

REPORT INFORMATION
  Report Type: 
  Country: None (occurrence: None)
  Receive Date: 20110909
  Receipt Date: 20110908
  Transmission Date: 20111222
  Serious: Yes (Death, Hospitalization, Other)
  Sender: FDA-Public Use
  Company Number: JP-ABBOTT-11P-087-0708346-00

PATIENT
  Sex: Female
  Weight: 42.7 kg

DRUGS (9)
  1. REBAMIPIDE [Concomitant]
     Indication: GASTRITIS
     Dates: start: 20081021, end: 20110118
  2. ETODOLAC [Concomitant]
     Indication: RHEUMATOID ARTHRITIS
     Route: 048
     Dates: start: 20090918, end: 20110118
  3. ETHYL ICOSAPENTATE [Concomitant]
     Indication: HYPERLIPIDAEMIA
     Route: 048
     Dates: start: 20081021, end: 20110118
  4. HUMIRA [Suspect]
     Indication: RHEUMATOID ARTHRITIS
     Route: 058
     Dates: start: 20100426, end: 20110118
  5. PREDNISOLONE [Concomitant]
     Indication: RHEUMATOID ARTHRITIS
     Route: 048
     Dates: start: 20090918, end: 20110118
  6. ROSUVASTATIN CALCIUM [Concomitant]
     Indication: HYPERLIPIDAEMIA
     Dates: start: 20081021, end: 20110118
  7. RABEPRAZOLE SODIUM [Concomitant]
     Indication: GASTRITIS
     Dates: start: 20081021, end: 20110118
  8. SODIUM RISEDRONATE HYDRATE [Concomitant]
     Indication: OSTEOPOROSIS
     Dates: start: 20081021, end: 20110118
  9. METHOTREXATE [Concomitant]
     Indication: PRODUCT USED FOR UNKNOWN INDICATION

REACTIONS (4)
  - LUNG NEOPLASM MALIGNANT [None]
  - PLEURAL EFFUSION [None]
  - HYPOPHAGIA [None]
  - HEART RATE INCREASED [None]
